FAERS Safety Report 8955273 (Version 1)
Quarter: 2012Q4

REPORT INFORMATION
  Report Type: 
  Country: US (occurrence: US)
  Receive Date: 20121207
  Receipt Date: 20121207
  Transmission Date: 20130627
  Serious: Yes (Hospitalization, Other)
  Sender: FDA-Public Use
  Company Number: US-ELI_LILLY_AND_COMPANY-US201211007837

PATIENT
  Sex: Male

DRUGS (4)
  1. BYETTA [Suspect]
     Indication: TYPE 2 DIABETES MELLITUS
     Dosage: 5 ug, bid
     Route: 058
  2. BYETTA [Suspect]
     Dosage: 10 ug, bid
     Route: 058
     Dates: end: 201205
  3. BYETTA [Suspect]
     Dosage: 5 ug, bid
     Route: 058
     Dates: start: 201207
  4. BYETTA [Suspect]
     Dosage: 10 ug, bid
     Route: 058

REACTIONS (2)
  - Cardiac valve disease [Recovered/Resolved]
  - Faeces hard [Not Recovered/Not Resolved]
